FAERS Safety Report 6572333-4 (Version None)
Quarter: 2010Q1

REPORT INFORMATION
  Report Type: 
  Country: None (occurrence: None)
  Receive Date: 20100205
  Receipt Date: 20100126
  Transmission Date: 20100710
  Serious: Yes (Other)
  Sender: FDA-Public Use
  Company Number: US-WATSON-2010-01134

PATIENT
  Age: 76 Year

DRUGS (1)
  1. LIDOCAINE HCL [Suspect]
     Indication: ALLERGY TEST
     Dosage: UNK
     Route: 023

REACTIONS (2)
  - ANGIOEDEMA [None]
  - BRONCHOSPASM [None]
